FAERS Safety Report 5416516-5 (Version None)
Quarter: 2007Q3

REPORT INFORMATION
  Report Type: 
  Country: None (occurrence: None)
  Receive Date: 20070814
  Receipt Date: 20070730
  Transmission Date: 20080115
  Serious: Yes (Life-Threatening)
  Sender: FDA-Public Use
  Company Number: 2007AL002846

PATIENT
  Age: 39 Year
  Sex: Female
  Weight: 70 kg

DRUGS (5)
  1. CITALOPRAM HYDROBROMIDE [Suspect]
     Indication: DEPRESSION
     Dosage: ;PO
     Route: 048
  2. SUMATRIPTAN SUCCINATE [Concomitant]
  3. MICROGYNON [Concomitant]
  4. LOPERAMIDE HCL [Concomitant]
  5. HYDROCHLORIDE [Concomitant]

REACTIONS (15)
  - ABASIA [None]
  - ANAPHYLACTIC SHOCK [None]
  - CHEST PAIN [None]
  - CIRCULATORY COLLAPSE [None]
  - DIARRHOEA [None]
  - DRUG INTERACTION [None]
  - DYSPNOEA [None]
  - GASTROENTERITIS [None]
  - HYPERHIDROSIS [None]
  - MALAISE [None]
  - PHARYNGEAL OEDEMA [None]
  - PHOTOPHOBIA [None]
  - PHOTOSENSITIVITY REACTION [None]
  - RASH [None]
  - THROAT TIGHTNESS [None]
